FAERS Safety Report 20491110 (Version 1)
Quarter: 2022Q1

REPORT INFORMATION
  Report Type: Spontaneous
  Country: US (occurrence: None)
  Receive Date: 20220218
  Receipt Date: 20220218
  Transmission Date: 20220423
  Serious: Yes (Life-Threatening, Hospitalization, Disabling)
  Sender: FDA-Public Use
  Company Number: None

PATIENT
  Age: 43 Year
  Sex: Female
  Weight: 72 kg

DRUGS (1)
  1. MORPHINE [Suspect]
     Active Substance: MORPHINE
     Indication: Respiratory distress
     Route: 042
     Dates: start: 20210401, end: 20210512

REACTIONS (11)
  - SARS-CoV-2 test positive [None]
  - Cerebrovascular accident [None]
  - Coma [None]
  - Drug hypersensitivity [None]
  - Unresponsive to stimuli [None]
  - Vomiting [None]
  - Eye movement disorder [None]
  - Hypotension [None]
  - Overdose [None]
  - Cardio-respiratory arrest [None]
  - Brain injury [None]

NARRATIVE: CASE EVENT DATE: 20210404
